FAERS Safety Report 11664771 (Version 2)
Quarter: 2015Q4

REPORT INFORMATION
  Report Type: Spontaneous
  Country: GB (occurrence: GB)
  Receive Date: 20151027
  Receipt Date: 20151201
  Transmission Date: 20160304
  Serious: Yes (Life-Threatening, Hospitalization)
  Sender: FDA-Public Use
  Company Number: GB-B. BRAUN MEDICAL INC.-1043430

PATIENT
  Age: 75 Year
  Sex: Female
  Weight: 61.95 kg

DRUGS (2)
  1. RITUXIMAB [Concomitant]
     Active Substance: RITUXIMAB
     Route: 042
     Dates: start: 20150930, end: 20150930
  2. SODIUM CHLORIDE. [Suspect]
     Active Substance: SODIUM CHLORIDE
     Route: 042
     Dates: start: 20150930, end: 20150930

REACTIONS (2)
  - Chest pain [None]
  - Acute myocardial infarction [None]

NARRATIVE: CASE EVENT DATE: 20150930
